FAERS Safety Report 7609287-5 (Version None)
Quarter: 2011Q3

REPORT INFORMATION
  Report Type: 
  Country: None (occurrence: None)
  Receive Date: 20110713
  Receipt Date: 20110713
  Transmission Date: 20111222
  Serious: Yes (Other)
  Sender: FDA-Public Use
  Company Number: None

PATIENT
  Sex: Female
  Weight: 92.7 kg

DRUGS (3)
  1. BOTOX 200 UNIT VIAL ALLERGAN [Suspect]
  2. BOTOX 200 UNIT VIAL ALLERGAN [Suspect]
     Indication: MIGRAINE
     Dosage: 200 UNITS Q 3 MONTHS SUBCUTANEOUS; 200 UNITS Q 3 MONTHS SUBCUTANEOUS
     Route: 058
     Dates: start: 20110216
  3. BOTOX 200 UNIT VIAL ALLERGAN [Suspect]
     Indication: MIGRAINE
     Dosage: 200 UNITS Q 3 MONTHS SUBCUTANEOUS; 200 UNITS Q 3 MONTHS SUBCUTANEOUS
     Route: 058
     Dates: start: 20110601

REACTIONS (6)
  - CONJUNCTIVAL HYPERAEMIA [None]
  - PRURITUS [None]
  - EYE PRURITUS [None]
  - EYELID OEDEMA [None]
  - SWELLING [None]
  - ERYTHEMA [None]
